FAERS Safety Report 25492478 (Version 1)
Quarter: 2025Q2

REPORT INFORMATION
  Report Type: Spontaneous
  Country: US (occurrence: US)
  Receive Date: 20250630
  Receipt Date: 20250630
  Transmission Date: 20250717
  Serious: No
  Sender: JOHNSON AND JOHNSON
  Company Number: US-JNJFOC-20250635266

PATIENT
  Sex: Female

DRUGS (2)
  1. SPRAVATO [Suspect]
     Active Substance: ESKETAMINE
     Indication: Product used for unknown indication
     Dates: end: 20250626
  2. SPRAVATO [Suspect]
     Active Substance: ESKETAMINE
     Dates: start: 20250626, end: 20250626

REACTIONS (9)
  - Feeling abnormal [Unknown]
  - Micturition urgency [Unknown]
  - Taste disorder [Unknown]
  - Panic attack [Unknown]
  - Tremor [Unknown]
  - Nausea [Unknown]
  - Bladder pain [Unknown]
  - Urethral pain [Unknown]
  - Diarrhoea [Unknown]
